FAERS Safety Report 25514706 (Version 2)
Quarter: 2025Q3

REPORT INFORMATION
  Report Type: Spontaneous
  Country: US (occurrence: US)
  Receive Date: 20250703
  Receipt Date: 20250716
  Transmission Date: 20251020
  Serious: Yes (Other)
  Sender: BRISTOL-MYERS SQUIBB COMPANY
  Company Number: US-BRISTOL-MYERS SQUIBB COMPANY-2025-093462

PATIENT
  Age: 55 Year
  Sex: Male
  Weight: 94.35 kg

DRUGS (1)
  1. REVLIMID [Suspect]
     Active Substance: LENALIDOMIDE
     Indication: Plasma cell myeloma
     Dosage: 1 CAPSULE BY MOUTH ONCE DAILY, 3 TIMES A WEEK AFTER DIALYSIS DAYS, FOR 3 WEEKS, THEN 1 WEEK OFF
     Route: 048

REACTIONS (2)
  - Cyst [Unknown]
  - Vasodilatation [Unknown]
